FAERS Safety Report 6179903-6 (Version None)
Quarter: 2009Q2

REPORT INFORMATION
  Report Type: 
  Country: None (occurrence: None)
  Receive Date: 20090505
  Receipt Date: 20090427
  Transmission Date: 20091009
  Serious: Yes (Hospitalization, Other)
  Sender: FDA-Public Use
  Company Number: CA-ABBOTT-09P-028-0563572-00

PATIENT
  Sex: Female
  Weight: 61.29 kg

DRUGS (1)
  1. HUMIRA [Suspect]
     Indication: RHEUMATOID ARTHRITIS
     Route: 058
     Dates: start: 20090220, end: 20090313

REACTIONS (7)
  - CHILLS [None]
  - DRY SKIN [None]
  - LOCALISED INFECTION [None]
  - MUSCULOSKELETAL STIFFNESS [None]
  - PYREXIA [None]
  - SKIN LACERATION [None]
  - TENOSYNOVITIS [None]
